FAERS Safety Report 13710382 (Version 2)
Quarter: 2017Q3

REPORT INFORMATION
  Report Type: Spontaneous
  Country: US (occurrence: US)
  Receive Date: 20170703
  Receipt Date: 20170925
  Transmission Date: 20171127
  Serious: No
  Sender: FDA-Public Use
  Company Number: PHEH2017US020060

PATIENT
  Weight: 74 kg

DRUGS (2)
  1. KISQALI [Suspect]
     Active Substance: RIBOCICLIB
     Indication: PRODUCT USED FOR UNKNOWN INDICATION
     Route: 065
  2. KISQALI [Suspect]
     Active Substance: RIBOCICLIB
     Dosage: UNK, ONCE,QD
     Route: 048
     Dates: end: 20170626

REACTIONS (3)
  - Eye swelling [Recovering/Resolving]
  - Nausea [Recovering/Resolving]
  - Pruritus generalised [Recovering/Resolving]
